FAERS Safety Report 4398365-2 (Version None)
Quarter: 2004Q3

REPORT INFORMATION
  Report Type: 
  Country: None (occurrence: None)
  Receive Date: 20040714
  Receipt Date: 20040714
  Transmission Date: 20050211
  Serious: Yes (Life-Threatening)
  Sender: FDA-Public Use
  Company Number: None

PATIENT
  Age: 59 Year
  Sex: Male
  Weight: 121.564 kg

DRUGS (1)
  1. RITUXIMAB 315 MG/M2 [Suspect]
     Indication: NON-HODGKIN'S LYMPHOMA
     Dosage: 750 MG IV WKLY X 8
     Route: 042
     Dates: start: 20040630

REACTIONS (2)
  - DYSPNOEA [None]
  - OXYGEN SATURATION DECREASED [None]
